FAERS Safety Report 5365286-8 (Version None)
Quarter: 2007Q2

REPORT INFORMATION
  Report Type: 
  Country: None (occurrence: None)
  Receive Date: 20070621
  Receipt Date: 20070608
  Transmission Date: 20071010
  Serious: Yes (Hospitalization)
  Sender: FDA-Public Use
  Company Number: FR-BAYER-200710365BFR

PATIENT
  Age: 84 Year
  Sex: Female

DRUGS (2)
  1. CIFLOX [Suspect]
     Indication: INFECTION
     Route: 065
     Dates: start: 20070115, end: 20070205
  2. CLAMOXYL [Suspect]
     Indication: INFECTION
     Route: 065
     Dates: start: 20070115, end: 20070205

REACTIONS (5)
  - DRUG RASH WITH EOSINOPHILIA AND SYSTEMIC SYMPTOMS [None]
  - FACE OEDEMA [None]
  - HAEMOGLOBIN DECREASED [None]
  - MOUTH ULCERATION [None]
  - RASH GENERALISED [None]
